FAERS Safety Report 8166351-2 (Version None)
Quarter: 2012Q1

REPORT INFORMATION
  Report Type: 
  Country: None (occurrence: None)
  Receive Date: 20120227
  Receipt Date: 20110706
  Transmission Date: 20120608
  Serious: No
  Sender: FDA-Public Use
  Company Number: US-MYLANLABS-2011S1012697

PATIENT
  Age: 16 Year
  Sex: Male
  Weight: 67.13 kg

DRUGS (2)
  1. AMNESTEEM [Suspect]
     Indication: ACNE CYSTIC
     Route: 048
     Dates: start: 20110601, end: 20110607
  2. IBUPROFEN [Concomitant]

REACTIONS (4)
  - DEPRESSION [None]
  - AGGRESSION [None]
  - DECREASED APPETITE [None]
  - HYPERSOMNIA [None]
